FAERS Safety Report 7339396-X (Version None)
Quarter: 2011Q1

REPORT INFORMATION
  Report Type: 
  Country: None (occurrence: None)
  Receive Date: 20110308
  Receipt Date: 20110223
  Transmission Date: 20110831
  Serious: Yes (Hospitalization, Other)
  Sender: FDA-Public Use
  Company Number: US-CELGENEUS-163-21880-10100610

PATIENT
  Sex: Male

DRUGS (3)
  1. REVLIMID [Suspect]
     Dosage: 15 MILLIGRAM
     Route: 048
     Dates: start: 20090801
  2. REVLIMID [Suspect]
     Dosage: 15 MILLIGRAM
     Route: 048
     Dates: start: 20100301, end: 20100922
  3. REVLIMID [Suspect]
     Indication: MULTIPLE MYELOMA
     Dosage: 25 MILLIGRAM
     Route: 048
     Dates: start: 20090101

REACTIONS (5)
  - CHOLELITHIASIS [None]
  - BACK PAIN [None]
  - CHOLECYSTITIS INFECTIVE [None]
  - MUSCLE SPASMS [None]
  - RENAL CANCER [None]
